FAERS Safety Report 8031273-4 (Version None)
Quarter: 2012Q1

REPORT INFORMATION
  Report Type: 
  Country: None (occurrence: None)
  Receive Date: 20120109
  Receipt Date: 20120103
  Transmission Date: 20120608
  Serious: Yes (Hospitalization)
  Sender: FDA-Public Use
  Company Number: US-GLAXOSMITHKLINE-A0814918A

PATIENT
  Age: 62 Year
  Sex: Male
  Weight: 128.6 kg

DRUGS (10)
  1. AVANDIA [Suspect]
     Indication: DIABETES MELLITUS
     Dosage: 4MG TWICE PER DAY
     Route: 048
     Dates: start: 20000101
  2. ATENOLOL [Concomitant]
  3. INSULIN [Concomitant]
  4. GLIPIZIDE [Concomitant]
  5. GABAPENTIN [Concomitant]
  6. GEMFIBROZIL [Concomitant]
  7. METFORMIN HCL [Concomitant]
  8. OMEPRAZOLE [Concomitant]
  9. SIMVASTATIN [Concomitant]
  10. DILTIAZEM HCL [Concomitant]

REACTIONS (1)
  - CEREBROVASCULAR ACCIDENT [None]
